FAERS Safety Report 9158520 (Version 1)
Quarter: 2013Q1

REPORT INFORMATION
  Report Type: Spontaneous
  Country: US (occurrence: US)
  Receive Date: 20130312
  Receipt Date: 20130312
  Transmission Date: 20140127
  Serious: Yes (Other)
  Sender: FDA-Public Use
  Company Number: US-AMGEN-USASP2013016568

PATIENT
  Age: 66 Year
  Sex: Female

DRUGS (3)
  1. ENBREL [Suspect]
     Indication: RHEUMATOID ARTHRITIS
     Dosage: 50 MG, QWK
     Dates: start: 20011001
  2. ARAVA [Concomitant]
     Dosage: 10 MG, QD
     Route: 048
     Dates: start: 201201
  3. HUMIRA [Concomitant]
     Dosage: UNK

REACTIONS (15)
  - Drug hypersensitivity [Recovered/Resolved]
  - Pulmonary congestion [Recovered/Resolved]
  - Upper respiratory tract congestion [Recovered/Resolved]
  - Asthenia [Recovered/Resolved]
  - Pyrexia [Recovered/Resolved]
  - Feeling abnormal [Recovered/Resolved]
  - Rheumatoid arthritis [Not Recovered/Not Resolved]
  - Rheumatoid nodule [Not Recovered/Not Resolved]
  - Blood uric acid increased [Recovered/Resolved]
  - Sinus congestion [Recovered/Resolved]
  - Nasal congestion [Recovered/Resolved]
  - Rhinorrhoea [Recovered/Resolved]
  - Cough [Recovered/Resolved]
  - Red blood cell sedimentation rate increased [Recovered/Resolved]
  - Injection site reaction [Not Recovered/Not Resolved]
